FAERS Safety Report 24533074 (Version 1)
Quarter: 2024Q4

REPORT INFORMATION
  Report Type: Spontaneous
  Country: IT (occurrence: IT)
  Receive Date: 20241022
  Receipt Date: 20241022
  Transmission Date: 20250115
  Serious: Yes (Other)
  Sender: SANDOZ
  Company Number: IT-TILLOMEDPR-2024-EPL-005148

PATIENT
  Age: 56 Year
  Sex: Female

DRUGS (6)
  1. HUMAN IMMUNOGLOBULIN G [Suspect]
     Active Substance: HUMAN IMMUNOGLOBULIN G
     Indication: Immune thrombocytopenia
     Dosage: UNK
     Route: 042
     Dates: start: 2013
  2. MYCOPHENOLATE MOFETIL [Suspect]
     Active Substance: MYCOPHENOLATE MOFETIL
     Indication: Immunosuppression
     Dosage: 1500 MILLIGRAM, QOD (ALTERNATE DAYS)
     Route: 065
     Dates: start: 202302
  3. MYCOPHENOLATE MOFETIL [Suspect]
     Active Substance: MYCOPHENOLATE MOFETIL
     Indication: Immune thrombocytopenia
     Dosage: 1500 MG
     Route: 065
     Dates: start: 202402
  4. PREDNISONE [Suspect]
     Active Substance: PREDNISONE
     Indication: Immune thrombocytopenia
     Dosage: 1 MG/KG
     Route: 065
     Dates: start: 2013
  5. PREDNISONE [Suspect]
     Active Substance: PREDNISONE
     Indication: Immunosuppression
     Dosage: 2.5 MILLIGRAM, QOD (ALTERNATE DAYS)
     Route: 065
     Dates: start: 202302
  6. PREDNISONE [Suspect]
     Active Substance: PREDNISONE
     Dosage: 2.5 MG ON ALTERNATE DAYS
     Route: 065
     Dates: start: 202402

REACTIONS (5)
  - Disease recurrence [Unknown]
  - Immune thrombocytopenia [Unknown]
  - Disease recurrence [Unknown]
  - Disease recurrence [Unknown]
  - COVID-19 [Unknown]

NARRATIVE: CASE EVENT DATE: 20180101
